FAERS Safety Report 25830569 (Version 1)
Quarter: 2025Q3

REPORT INFORMATION
  Report Type: Other
  Country: CA (occurrence: CA)
  Receive Date: 20250922
  Receipt Date: 20250922
  Transmission Date: 20251020
  Serious: Yes (Other)
  Sender: APOTEX
  Company Number: CA-PGRTD-E2B_06716889

PATIENT
  Age: 33 Year
  Sex: Female

DRUGS (3)
  1. AMBRISENTAN [Suspect]
     Active Substance: AMBRISENTAN
     Indication: Pulmonary arterial hypertension
     Dosage: 1 EVERY 1 DAYS
     Route: 065
  2. LASIX [Concomitant]
     Active Substance: FUROSEMIDE
     Indication: Product used for unknown indication
     Route: 065
  3. LASIX [Concomitant]
     Active Substance: FUROSEMIDE
     Route: 065

REACTIONS (14)
  - Weight increased [Unknown]
  - Malaise [Unknown]
  - Anaphylactic shock [Unknown]
  - Dyspnoea exertional [Unknown]
  - Decreased appetite [Unknown]
  - Weight decreased [Unknown]
  - Abdominal pain [Unknown]
  - Bronchitis [Unknown]
  - Tonsillitis [Unknown]
  - Throat tightness [Unknown]
  - Nausea [Unknown]
  - Fatigue [Unknown]
  - Abdominal distension [Unknown]
  - Dyspnoea [Unknown]
